FAERS Safety Report 8560881-7 (Version None)
Quarter: 2012Q3

REPORT INFORMATION
  Report Type: 
  Country: None (occurrence: None)
  Receive Date: 20120727
  Receipt Date: 20120727
  Transmission Date: 20120928
  Serious: Yes (Hospitalization)
  Sender: FDA-Public Use
  Company Number: None

PATIENT
  Age: 90 Year
  Sex: Female
  Weight: 63.6 kg

DRUGS (19)
  1. ASPIRIN [Concomitant]
  2. FERRROUS SULFATE [Concomitant]
  3. DILTIAZEM [Concomitant]
  4. ZANTAC [Concomitant]
  5. POTASSIUM CHLORIDE [Concomitant]
  6. SIMVASTATIN [Concomitant]
  7. CIPROFLOXACIN HCL [Concomitant]
  8. PLAQUENIL [Concomitant]
  9. TRUSOPT [Concomitant]
  10. ARICEPT [Concomitant]
  11. CALCIUM + VIT D [Concomitant]
  12. BACTRIM [Suspect]
     Indication: SKIN ULCER
     Dosage: 1 TABLET, BID , 10 DAYS PO
     Route: 048
  13. M.V.I. [Concomitant]
  14. DIGOXIN [Concomitant]
  15. COUMADIN [Suspect]
     Indication: CORONARY ARTERY DISEASE
     Dosage: 3MG/4MG EOD ALTERNATING, PO
     Route: 048
  16. COUMADIN [Suspect]
     Indication: PULMONARY EMBOLISM
     Dosage: 3MG/4MG EOD ALTERNATING, PO
     Route: 048
  17. XALATIN [Concomitant]
  18. PREDNISONE [Concomitant]
  19. REMERON [Concomitant]

REACTIONS (4)
  - HYPERKALAEMIA [None]
  - BRADYCARDIA [None]
  - TORSADE DE POINTES [None]
  - CARDIAC ARREST [None]
